FAERS Safety Report 17441087 (Version 1)
Quarter: 2020Q1

REPORT INFORMATION
  Report Type: Spontaneous
  Country: JP (occurrence: JP)
  Receive Date: 20200220
  Receipt Date: 20200220
  Transmission Date: 20200409
  Serious: Yes (Other)
  Sender: FDA-Public Use
  Company Number: JP-PFIZER INC-2020065310

PATIENT
  Age: 11 Year
  Sex: Male

DRUGS (2)
  1. VINCRISTINE [Suspect]
     Active Substance: VINCRISTINE
     Indication: OSTEOSARCOMA
     Dosage: 1.2 MG, UNK
  2. METHOTREXATE. [Suspect]
     Active Substance: METHOTREXATE
     Indication: OSTEOSARCOMA
     Dosage: 14 G, UNK, HIGH DOSE THERAPY (12G/M2)
     Dates: start: 1998

REACTIONS (10)
  - Alanine aminotransferase increased [Recovering/Resolving]
  - Depressed level of consciousness [Unknown]
  - Nephropathy toxic [Recovering/Resolving]
  - Blood lactate dehydrogenase increased [Recovering/Resolving]
  - Blood creatinine increased [Recovering/Resolving]
  - Hypertension [Unknown]
  - Haemoglobin decreased [Unknown]
  - Aspartate aminotransferase increased [Recovering/Resolving]
  - Convulsions local [Unknown]
  - Acidosis [Unknown]

NARRATIVE: CASE EVENT DATE: 1998
